FAERS Safety Report 5656151-7 (Version None)
Quarter: 2008Q1

REPORT INFORMATION
  Report Type: 
  Country: None (occurrence: None)
  Receive Date: 20080305
  Receipt Date: 20080220
  Transmission Date: 20080703
  Serious: Yes (Hospitalization)
  Sender: FDA-Public Use
  Company Number: 1-15803875

PATIENT
  Age: 50 Year
  Sex: Female
  Weight: 77.1115 kg

DRUGS (5)
  1. FENTANYL [Suspect]
     Indication: PAIN
     Dosage: 100 MCG/HR, TRANSDERMAL
     Route: 062
     Dates: start: 20000201
  2. FENTANYL [Suspect]
     Indication: PAIN
     Dosage: 75 MCG/HR,TRANSDERMAL
     Route: 062
     Dates: start: 20000201
  3. KLONOPIN [Concomitant]
  4. DILANTIN [Concomitant]
  5. KEPPRA [Concomitant]

REACTIONS (1)
  - CONVULSION [None]
